FAERS Safety Report 23648525 (Version 1)
Quarter: 2024Q1

REPORT INFORMATION
  Report Type: Spontaneous
  Country: GB (occurrence: GB)
  Receive Date: 20240319
  Receipt Date: 20240319
  Transmission Date: 20240409
  Serious: Yes (Other)
  Sender: FDA-Public Use
  Company Number: None

PATIENT

DRUGS (1)
  1. ATORVASTATIN [Suspect]
     Active Substance: ATORVASTATIN
     Indication: Adverse drug reaction
     Dosage: 80MG AT NIGHT; ;
     Route: 065
     Dates: start: 20230105, end: 20240117

REACTIONS (1)
  - Dupuytren^s contracture [Recovering/Resolving]

NARRATIVE: CASE EVENT DATE: 20240117
